FAERS Safety Report 5090771-6 (Version None)
Quarter: 2006Q3

REPORT INFORMATION
  Report Type: 
  Country: None (occurrence: None)
  Receive Date: 20060823
  Receipt Date: 20060808
  Transmission Date: 20061208
  Serious: Yes (Hospitalization, Other)
  Sender: FDA-Public Use
  Company Number: PHBS2006DE12015

PATIENT
  Age: 60 Year
  Sex: Female

DRUGS (3)
  1. CYCLOSPORINE [Suspect]
     Indication: LIVER TRANSPLANT
     Dosage: 50 MG, BID
  2. MYCOPHENOLATE (MYCOPHENOLIC ACID) [Suspect]
     Indication: LIVER TRANSPLANT
     Dosage: 500 MG, BID
  3. METHYLPREDNISOLONE [Suspect]
     Indication: LIVER TRANSPLANT

REACTIONS (12)
  - ABSCESS INTESTINAL [None]
  - BILIARY ANASTOMOSIS COMPLICATION [None]
  - BILIARY ISCHAEMIA [None]
  - COLITIS ULCERATIVE [None]
  - COMPLICATIONS OF TRANSPLANT SURGERY [None]
  - DRUG INEFFECTIVE [None]
  - ENTEROCOLITIS HAEMORRHAGIC [None]
  - INFLAMMATORY BOWEL DISEASE [None]
  - LIVER TRANSPLANT [None]
  - LIVER TRANSPLANT REJECTION [None]
  - OSTEOPOROSIS [None]
  - RENAL FAILURE [None]
